FAERS Safety Report 8143633-1 (Version None)
Quarter: 2012Q1

REPORT INFORMATION
  Report Type: 
  Country: None (occurrence: None)
  Receive Date: 20120217
  Receipt Date: 20120203
  Transmission Date: 20120608
  Serious: Yes (Congenital Anomaly)
  Sender: FDA-Public Use
  Company Number: NL-MYLANLABS-2012S1002930

PATIENT

DRUGS (1)
  1. METHIMAZOLE [Suspect]
     Indication: BASEDOW'S DISEASE
     Route: 064

REACTIONS (11)
  - PSYCHOMOTOR SKILLS IMPAIRED [None]
  - EXOMPHALOS [None]
  - ILEAL STENOSIS [None]
  - MICROPENIS [None]
  - DYSMORPHISM [None]
  - PHIMOSIS [None]
  - FINGER DEFORMITY [None]
  - CEREBRAL HAEMORRHAGE FOETAL [None]
  - BILIARY DILATATION [None]
  - CONGENITAL ANOMALY [None]
  - KIDNEY MALFORMATION [None]
